FAERS Safety Report 6418694-8 (Version None)
Quarter: 2009Q4

REPORT INFORMATION
  Report Type: 
  Country: None (occurrence: None)
  Receive Date: 20091026
  Receipt Date: 20091013
  Transmission Date: 20100525
  Serious: Yes (Death, Life-Threatening, Hospitalization, Disabling, Other)
  Sender: FDA-Public Use
  Company Number: ADR38922009

PATIENT
  Age: 34 Year
  Sex: Male

DRUGS (4)
  1. SIMVASTATIN [Suspect]
     Dosage: 40 MG,  1/1 DAYS,  ORAL
     Route: 048
     Dates: start: 20050101, end: 20071212
  2. ASPIRIN [Concomitant]
  3. AVANDAMET [Concomitant]
  4. FENOFIBRATE [Concomitant]

REACTIONS (11)
  - CARDIAC DISORDER [None]
  - CONTINUOUS HAEMODIAFILTRATION [None]
  - DEHYDRATION [None]
  - DILATATION VENTRICULAR [None]
  - HYPERHIDROSIS [None]
  - METABOLIC ACIDOSIS [None]
  - MULTI-ORGAN FAILURE [None]
  - PANCREATITIS [None]
  - PULMONARY EMBOLISM [None]
  - RENAL FAILURE [None]
  - TACHYPNOEA [None]
